FAERS Safety Report 6016398-7 (Version None)
Quarter: 2008Q4

REPORT INFORMATION
  Report Type: 
  Country: None (occurrence: None)
  Receive Date: 20081218
  Receipt Date: 20081204
  Transmission Date: 20090506
  Serious: Yes (Other)
  Sender: FDA-Public Use
  Company Number: 232024K08USA

PATIENT
  Age: 54 Year
  Sex: Female

DRUGS (5)
  1. REBIF [Suspect]
     Indication: MULTIPLE SCLEROSIS
     Dosage: 44 MCG, 3 IN 1 WEEKS, SUBCUTANEOUS
     Route: 058
     Dates: start: 20070501
  2. CORTISONE (CORTICOSTEROIDS FOR SYSTEMIC USE) [Concomitant]
  3. LOVASTATIN [Concomitant]
  4. HYDROCHLOROTHIAZIDE [Concomitant]
  5. IBUPROFEN [Concomitant]

REACTIONS (11)
  - ABASIA [None]
  - AMNESIA [None]
  - CEREBROVASCULAR ACCIDENT [None]
  - CONDITION AGGRAVATED [None]
  - CONVULSION [None]
  - DYSARTHRIA [None]
  - EYE DISORDER [None]
  - FACIAL PALSY [None]
  - MIGRAINE [None]
  - MULTIPLE SCLEROSIS [None]
  - VISUAL ACUITY REDUCED [None]
